FAERS Safety Report 20590264 (Version 1)
Quarter: 2022Q1

REPORT INFORMATION
  Report Type: Spontaneous
  Country: IL (occurrence: IL)
  Receive Date: 20220314
  Receipt Date: 20220314
  Transmission Date: 20220424
  Serious: Yes (Death, Other)
  Sender: FDA-Public Use
  Company Number: IL-PFIZER INC-202200354995

PATIENT
  Age: 84 Year
  Sex: Female

DRUGS (2)
  1. BESPONSA [Suspect]
     Active Substance: INOTUZUMAB OZOGAMICIN
     Dosage: UNK
  2. BLINCYTO [Suspect]
     Active Substance: BLINATUMOMAB
     Indication: Product used for unknown indication
     Dosage: UNK

REACTIONS (4)
  - Death [Fatal]
  - Cytokine release syndrome [Recovered/Resolved]
  - Neoplasm progression [Unknown]
  - Fall [Unknown]
